FAERS Safety Report 21239691 (Version 1)
Quarter: 2022Q3

REPORT INFORMATION
  Report Type: Spontaneous
  Country: IN (occurrence: IN)
  Receive Date: 20220822
  Receipt Date: 20220822
  Transmission Date: 20221026
  Serious: Yes (Death)
  Sender: FDA-Public Use
  Company Number: IN-PFIZER INC-2021622595

PATIENT
  Age: 64 Year
  Sex: Female

DRUGS (4)
  1. PALBOCICLIB [Suspect]
     Active Substance: PALBOCICLIB
     Indication: Breast cancer metastatic
     Dosage: 125 MG, CYCLIC(ONCE A DAY (ALONG WITH FOOD) (3 WEEKS ON AND 1 WEEK OFF))
     Route: 048
     Dates: start: 20210313, end: 20211214
  2. PALBOCICLIB [Suspect]
     Active Substance: PALBOCICLIB
     Dosage: 100 MG, 1X/DAY  (OD)
     Route: 048
     Dates: start: 20211214
  3. FULVETRAZ [Concomitant]
     Dosage: 500 MG ( STAT(D1, D15, D29)-  FOLLOWED BY ONCE A MONTH)
     Route: 030
  4. FULVETRAZ [Concomitant]
     Dosage: 500 MG, MONTHLY (ONCE A MONTH)
     Route: 030

REACTIONS (2)
  - Death [Fatal]
  - Full blood count decreased [Unknown]
